FAERS Safety Report 9780027 (Version 1)
Quarter: 2013Q4

REPORT INFORMATION
  Report Type: Spontaneous
  Country: US (occurrence: US)
  Receive Date: 20131223
  Receipt Date: 20131223
  Transmission Date: 20140711
  Serious: No
  Sender: FDA-Public Use
  Company Number: US-TEVA-450357USA

PATIENT
  Age: 32 Year
  Sex: Female

DRUGS (5)
  1. NUVIGIL [Suspect]
     Indication: ASTHENIA
     Dosage: 500 MILLIGRAM DAILY;
  2. NUVIGIL [Suspect]
     Indication: MIGRAINE
  3. NUVIGIL [Suspect]
     Indication: AUTOIMMUNE DISORDER
  4. TOPAMAX [Concomitant]
  5. MORPHINE [Concomitant]
     Indication: PAIN

REACTIONS (5)
  - Abdominal pain upper [Unknown]
  - Vomiting [Recovered/Resolved]
  - Abdominal discomfort [Unknown]
  - Asthenia [Not Recovered/Not Resolved]
  - Off label use [Unknown]
